FAERS Safety Report 14082959 (Version 3)
Quarter: 2020Q2

REPORT INFORMATION
  Report Type: Spontaneous
  Country: JP (occurrence: JP)
  Receive Date: 20171012
  Receipt Date: 20200627
  Transmission Date: 20200713
  Serious: Yes (Other)
  Sender: FDA-Public Use
  Company Number: JP-AMGEN-JPNSP2017155156

PATIENT
  Age: 68 Year
  Sex: Male
  Weight: 50.8 kg

DRUGS (9)
  1. VECTIBIX [Suspect]
     Active Substance: PANITUMUMAB
     Indication: COLON CANCER
     Dosage: UNK
     Route: 050
  2. CALCIUM LEVOFOLINATE [Suspect]
     Active Substance: LEVOLEUCOVORIN CALCIUM
     Indication: COLON CANCER
     Dosage: UNK
     Route: 065
  3. MIYA-BM [Concomitant]
     Active Substance: CLOSTRIDIUM BUTYRICUM SPORES STRAIN M-55
     Dosage: 0.5 GRAM, TID
     Route: 048
  4. IRINOTECAN HYDROCHLORIDE. [Suspect]
     Active Substance: IRINOTECAN HYDROCHLORIDE
     Indication: COLON CANCER
     Dosage: UNK
     Route: 050
  5. PARIET [Concomitant]
     Active Substance: RABEPRAZOLE SODIUM
     Dosage: 10 MILLIGRAM, QD
     Route: 065
  6. OXALIPLATIN. [Suspect]
     Active Substance: OXALIPLATIN
     Indication: COLON CANCER
     Dosage: UNK
     Route: 050
  7. BEVACIZUMAB. [Suspect]
     Active Substance: BEVACIZUMAB
     Indication: COLON CANCER
     Dosage: UNK
     Route: 050
  8. SODIUM BICARBONATE. [Concomitant]
     Active Substance: SODIUM BICARBONATE
     Dosage: 1 GRAM, TID
     Route: 065
  9. FLUOROURACIL. [Suspect]
     Active Substance: FLUOROURACIL
     Indication: COLON CANCER
     Dosage: UNK
     Route: 050

REACTIONS (6)
  - Diarrhoea [Unknown]
  - Hyperuricaemia [Unknown]
  - Hyperuricosuria [Unknown]
  - End stage renal disease [Unknown]
  - Hyperoxaluria [Unknown]
  - Crystal nephropathy [Unknown]
